FAERS Safety Report 18445741 (Version 1)
Quarter: 2020Q4

REPORT INFORMATION
  Report Type: Spontaneous
  Country: AT (occurrence: AT)
  Receive Date: 20201030
  Receipt Date: 20201030
  Transmission Date: 20210114
  Serious: Yes (Hospitalization)
  Sender: FDA-Public Use
  Company Number: AT-PFIZER INC-2020418666

PATIENT
  Age: 69 Year
  Sex: Male

DRUGS (2)
  1. VYNDAQEL [Suspect]
     Active Substance: TAFAMIDIS MEGLUMINE
     Indication: CARDIAC AMYLOIDOSIS
     Dosage: 61 MG
     Dates: start: 2019
  2. VYNDAQEL [Suspect]
     Active Substance: TAFAMIDIS MEGLUMINE
     Indication: AMYLOIDOSIS SENILE

REACTIONS (2)
  - Intervertebral disc protrusion [Unknown]
  - Bone cyst [Unknown]

NARRATIVE: CASE EVENT DATE: 20201022
